FAERS Safety Report 8259572-1 (Version None)
Quarter: 2012Q2

REPORT INFORMATION
  Report Type: 
  Country: None (occurrence: None)
  Receive Date: 20120404
  Receipt Date: 20120330
  Transmission Date: 20120825
  Serious: Yes (Death, Hospitalization, Other)
  Sender: FDA-Public Use
  Company Number: PHHY2010JP30957

PATIENT
  Age: 58 Year
  Sex: Female

DRUGS (5)
  1. AFINITOR [Suspect]
     Indication: METASTATIC RENAL CELL CARCINOMA
     Dosage: 10MG DAILY
     Route: 048
     Dates: start: 20100422, end: 20100502
  2. NEXAVAR [Suspect]
     Indication: METASTATIC RENAL CELL CARCINOMA
     Dosage: 800 MG, UNK
     Route: 048
     Dates: start: 20080717, end: 20100422
  3. SODIUM CHLORIDE SOLUTION [Concomitant]
     Indication: RENAL CELL CARCINOMA
     Dosage: 500 ML, UNK
     Route: 042
     Dates: start: 20100502, end: 20100508
  4. UFT [Concomitant]
     Indication: RENAL CELL CARCINOMA
     Dosage: 300 MG, UNK
     Route: 048
     Dates: start: 20071210, end: 20080423
  5. NEXAVAR [Suspect]
     Dosage: 800 MG, UNK
     Route: 048
     Dates: start: 20080424, end: 20100421

REACTIONS (9)
  - SOMNOLENCE [None]
  - PNEUMONIA [None]
  - LYMPHOCYTE COUNT DECREASED [None]
  - HYPONATRAEMIA [None]
  - ANAEMIA [None]
  - NEUTROPHIL COUNT INCREASED [None]
  - NEOPLASM PROGRESSION [None]
  - HYPOTHYROIDISM [None]
  - NEOPLASM MALIGNANT [None]
